FAERS Safety Report 10489861 (Version 2)
Quarter: 2015Q1

REPORT INFORMATION
  Report Type: Spontaneous
  Country: US (occurrence: None)
  Receive Date: 20140815
  Receipt Date: 20150313
  Transmission Date: 20150720
  Serious: Yes (Life-Threatening, Hospitalization, Other)
  Sender: FDA-Public Use
  Company Number: ADR-2013-01427

PATIENT
  Age: 50 Year
  Sex: Male

DRUGS (5)
  1. BUPIVACAINE [Suspect]
     Active Substance: BUPIVACAINE
  2. DILAUDID [Suspect]
     Active Substance: HYDROMORPHONE HYDROCHLORIDE
     Dosage: 4.9996 MG/DAY; SEE B5
  3. MORPHINE [Suspect]
     Active Substance: MORPHINE
  4. CLONIDINE. [Suspect]
     Active Substance: CLONIDINE
  5. BACLOFEN INTRATHECAL [Suspect]
     Active Substance: BACLOFEN
     Indication: PAIN
     Dosage: 885.34 MCG/DAY

REACTIONS (20)
  - Unresponsive to stimuli [None]
  - Joint dislocation [None]
  - Amnesia [None]
  - Aphasia [None]
  - Seizure [None]
  - Overdose [None]
  - Lethargy [None]
  - Anxiety [None]
  - Respiratory distress [None]
  - Memory impairment [None]
  - Somnolence [None]
  - Mental status changes [None]
  - Hypoxia [None]
  - Confusional state [None]
  - Acute respiratory failure [None]
  - Agitation [None]
  - Drug withdrawal syndrome [None]
  - Nausea [None]
  - Restlessness [None]
  - Aggression [None]
